FAERS Safety Report 7939013-1 (Version None)
Quarter: 2011Q4

REPORT INFORMATION
  Report Type: 
  Country: None (occurrence: None)
  Receive Date: 20111124
  Receipt Date: 20111121
  Transmission Date: 20120403
  Serious: Yes (Hospitalization)
  Sender: FDA-Public Use
  Company Number: BR-PFIZER INC-2011284436

PATIENT
  Age: 57 Year
  Sex: Male
  Weight: 60 kg

DRUGS (2)
  1. VARENICLINE TARTRATE [Suspect]
     Dosage: 1MG, EVERY 12 HOURS
     Route: 048
     Dates: start: 20110101, end: 20111027
  2. VARENICLINE TARTRATE [Suspect]
     Indication: SMOKING CESSATION THERAPY
     Dosage: UNK
     Route: 048
     Dates: start: 20110817, end: 20110101

REACTIONS (1)
  - GASTROINTESTINAL INFECTION [None]
